FAERS Safety Report 5836134-4 (Version None)
Quarter: 2008Q3

REPORT INFORMATION
  Report Type: 
  Country: None (occurrence: None)
  Receive Date: 20080805
  Receipt Date: 20080721
  Transmission Date: 20090109
  Serious: Yes (Death)
  Sender: FDA-Public Use
  Company Number: 19851

PATIENT
  Age: 21 Year
  Sex: Male

DRUGS (1)
  1. VINCRISTINE [Suspect]
     Indication: NON-HODGKIN'S LYMPHOMA

REACTIONS (7)
  - ARRHYTHMIA [None]
  - AUTONOMIC NEUROPATHY [None]
  - CRANIAL NEUROPATHY [None]
  - CSF PROTEIN INCREASED [None]
  - GUILLAIN-BARRE SYNDROME [None]
  - NEUROPATHY PERIPHERAL [None]
  - PNEUMONIA [None]
